FAERS Safety Report 12507901 (Version 1)
Quarter: 2016Q2

REPORT INFORMATION
  Report Type: Spontaneous
  Country: US (occurrence: US)
  Receive Date: 20160629
  Receipt Date: 20160629
  Transmission Date: 20160815
  Serious: Yes (Hospitalization)
  Sender: FDA-Public Use
  Company Number: US-ASTRAZENECA-2016SE68682

PATIENT
  Age: 65 Year
  Sex: Female
  Weight: 67.1 kg

DRUGS (27)
  1. XANAX [Concomitant]
     Active Substance: ALPRAZOLAM
     Indication: ANXIETY
  2. SERTRALINE HCL [Concomitant]
     Active Substance: SERTRALINE HYDROCHLORIDE
     Indication: ANXIETY
     Dosage: 100MG ONE AND ONE HALF TABLETS DAILY
     Route: 048
  3. OXYGEN. [Concomitant]
     Active Substance: OXYGEN
     Dosage: 2LITERS NASAL CANULA AT NIGHT
     Route: 045
  4. XANAX [Concomitant]
     Active Substance: ALPRAZOLAM
     Indication: NECK PAIN
  5. XANAX [Concomitant]
     Active Substance: ALPRAZOLAM
     Indication: ANXIETY
     Dosage: DAVA PHARMACEUTICALS
     Route: 048
  6. HIGHT POTENCY BIOTIN [Concomitant]
     Indication: SUPPLEMENTATION THERAPY
     Route: 048
  7. CRESTOR [Suspect]
     Active Substance: ROSUVASTATIN CALCIUM
     Route: 048
  8. ZETIA [Concomitant]
     Active Substance: EZETIMIBE
     Indication: BLOOD CHOLESTEROL ABNORMAL
     Dates: start: 20160327
  9. VITAMIN B12 [Concomitant]
     Active Substance: CYANOCOBALAMIN
     Indication: SUPPLEMENTATION THERAPY
     Route: 048
  10. FLUTICASONE PROPIONATE. [Concomitant]
     Active Substance: FLUTICASONE PROPIONATE
     Indication: HYPERSENSITIVITY
     Dosage: 50MCG ONE SPRAY EACH NOSTRIL AT NIGHT
     Route: 045
  11. TYLENOL [Concomitant]
     Active Substance: ACETAMINOPHEN
     Dosage: TWICE A DAY FOR THREE DAYS
  12. CARTIA XT 24 [Concomitant]
     Indication: PALPITATIONS
     Dosage: 120 MG ONE CAPSULE BY MOUTH EVERY MORNING
     Route: 048
  13. CETIRIZINE HCL [Concomitant]
     Active Substance: CETIRIZINE HYDROCHLORIDE
     Indication: HYPERSENSITIVITY
     Route: 048
  14. LEVOTHYROXINE SODIUM. [Concomitant]
     Active Substance: LEVOTHYROXINE SODIUM
     Indication: THYROID DISORDER
     Dosage: 50 MCG ONE TABLET BY MOUTH EVERY MORNING
     Route: 048
  15. LYRICA [Concomitant]
     Active Substance: PREGABALIN
     Indication: FIBROMYALGIA
     Route: 048
  16. ADVAIR HFA [Concomitant]
     Active Substance: FLUTICASONE PROPIONATE\SALMETEROL XINAFOATE
     Indication: PNEUMONIA
     Dosage: 5/500MG ONE INHALATION BY MOUTH MORNING AND NIGHT
     Route: 055
  17. SERTRALINE HCL [Concomitant]
     Active Substance: SERTRALINE HYDROCHLORIDE
     Indication: DEPRESSION
     Dosage: 100MG ONE AND ONE HALF TABLETS DAILY
     Route: 048
  18. MONTELUKAST SODIUM. [Concomitant]
     Active Substance: MONTELUKAST SODIUM
     Indication: ASTHMA
     Route: 048
     Dates: start: 20160224
  19. LANSOPRAZOLE. [Concomitant]
     Active Substance: LANSOPRAZOLE
     Indication: HERPES OESOPHAGITIS
     Route: 048
  20. IPRATROPIUM BROMIDE 0.5 MG ALUTEROL SULFATE [Concomitant]
     Indication: CHRONIC OBSTRUCTIVE PULMONARY DISEASE
     Dosage: 3MG ONE INHALATION BY MOUTH EACH MORNING
     Route: 055
  21. ZETIA [Concomitant]
     Active Substance: EZETIMIBE
     Indication: BLOOD CHOLESTEROL ABNORMAL
  22. ADVAIR HFA [Concomitant]
     Active Substance: FLUTICASONE PROPIONATE\SALMETEROL XINAFOATE
     Indication: BRONCHITIS
     Dosage: 5/500MG ONE INHALATION BY MOUTH MORNING AND NIGHT
     Route: 055
  23. ECOTRIN [Concomitant]
     Active Substance: ASPIRIN
     Indication: CARDIAC DISORDER
     Route: 048
  24. OPCON-A [Concomitant]
     Active Substance: NAPHAZOLINE HYDROCHLORIDE\PHENIRAMINE MALEATE
     Indication: EYE ALLERGY
     Dosage: ONE TO TWO DROPS EACH EYE TWICE A DAY
     Route: 047
  25. LYRICA [Concomitant]
     Active Substance: PREGABALIN
     Indication: FIBROMYALGIA
     Route: 048
  26. XANAX [Concomitant]
     Active Substance: ALPRAZOLAM
     Indication: NECK PAIN
     Dosage: DAVA PHARMACEUTICALS
     Route: 048
  27. CALCIUM MAGNESIUM ZINC PLUS VITAMIN D3 [Concomitant]
     Indication: OSTEOPOROSIS
     Dosage: TWO TABLETS BY MOUTH IN THE MORNING AND ONE AT NIGHT
     Route: 048
     Dates: start: 2015

REACTIONS (2)
  - Hepatic enzyme increased [Unknown]
  - Pain [Unknown]
